FAERS Safety Report 8444611-5 (Version None)
Quarter: 2012Q2

REPORT INFORMATION
  Report Type: 
  Country: None (occurrence: None)
  Receive Date: 20120618
  Receipt Date: 20120605
  Transmission Date: 20120825
  Serious: No
  Sender: FDA-Public Use
  Company Number: US-ASTRAZENECA-2012SE31081

PATIENT
  Age: 65 Year
  Sex: Female
  Weight: 95.7 kg

DRUGS (1)
  1. CRESTOR [Suspect]
     Route: 048

REACTIONS (11)
  - RHINORRHOEA [None]
  - DRUG DOSE OMISSION [None]
  - INGROWING NAIL [None]
  - CYSTITIS [None]
  - MULTIPLE ALLERGIES [None]
  - READING DISORDER [None]
  - FUNGAL INFECTION [None]
  - LIMB INJURY [None]
  - EYE DISORDER [None]
  - SINUSITIS [None]
  - URINARY TRACT INFECTION [None]
